FAERS Safety Report 5854644-0 (Version None)
Quarter: 2008Q3

REPORT INFORMATION
  Report Type: 
  Country: None (occurrence: None)
  Receive Date: 20080822
  Receipt Date: 20071120
  Transmission Date: 20090109
  Serious: No
  Sender: FDA-Public Use
  Company Number: US-ABBOTT-07P-163-0425596-00

PATIENT
  Sex: Female
  Weight: 59.928 kg

DRUGS (3)
  1. SYNTHROID [Suspect]
     Indication: HYPOTHYROIDISM
     Route: 048
     Dates: start: 20041101, end: 20070701
  2. SYNTHROID [Suspect]
     Route: 048
     Dates: start: 20070701, end: 20070901
  3. ANOVLAR [Concomitant]
     Indication: ENDOMETRIOSIS
     Route: 048
     Dates: start: 20050101

REACTIONS (2)
  - DIARRHOEA [None]
  - INSOMNIA [None]
